FAERS Safety Report 16893930 (Version 1)
Quarter: 2019Q4

REPORT INFORMATION
  Report Type: Spontaneous
  Country: NE (occurrence: NE)
  Receive Date: 20191008
  Receipt Date: 20191008
  Transmission Date: 20200122
  Serious: Yes (Death)
  Sender: FDA-Public Use
  Company Number: NE-NOVAST LABORATORIES LTD.-2019NOV000288

PATIENT
  Age: 42 Year
  Sex: Male
  Weight: 55 kg

DRUGS (1)
  1. QUININE [Suspect]
     Active Substance: QUININE
     Indication: MALARIA
     Dosage: 25 MG/KG PER 24 HOURS
     Route: 065

REACTIONS (4)
  - Shock [Fatal]
  - Anuria [Fatal]
  - Coma [Fatal]
  - Plasmodium falciparum infection [Fatal]
